FAERS Safety Report 8509524-9 (Version None)
Quarter: 2012Q3

REPORT INFORMATION
  Report Type: 
  Country: None (occurrence: None)
  Receive Date: 20120713
  Receipt Date: 20120709
  Transmission Date: 20120928
  Serious: Yes (Other)
  Sender: FDA-Public Use
  Company Number: US-PFIZER INC-2012164951

PATIENT
  Sex: Female
  Weight: 60.317 kg

DRUGS (1)
  1. PRISTIQ [Suspect]
     Indication: DEPRESSION
     Dosage: 50 MG, UNK
     Dates: start: 20120602, end: 20120706

REACTIONS (17)
  - VISUAL IMPAIRMENT [None]
  - IRRITABILITY [None]
  - IMPAIRED DRIVING ABILITY [None]
  - WITHDRAWAL SYNDROME [None]
  - ANXIETY [None]
  - AGGRESSION [None]
  - NAUSEA [None]
  - MALAISE [None]
  - ANGER [None]
  - HEADACHE [None]
  - INSOMNIA [None]
  - FEELING ABNORMAL [None]
  - ABNORMAL DREAMS [None]
  - DIZZINESS [None]
  - HYPOTENSION [None]
  - HOSTILITY [None]
  - HOT FLUSH [None]
